FAERS Safety Report 12428536 (Version 1)
Quarter: 2016Q2

REPORT INFORMATION
  Report Type: Spontaneous
  Country: US (occurrence: US)
  Receive Date: 20160602
  Receipt Date: 20160602
  Transmission Date: 20160815
  Serious: No
  Sender: FDA-Public Use
  Company Number: US-BAYER-2016-101567

PATIENT
  Sex: Female

DRUGS (6)
  1. ZINC [Concomitant]
     Active Substance: ZINC\ZINC CHLORIDE
  2. BIOTIN [Concomitant]
     Active Substance: BIOTIN
  3. VITAMIN D [Concomitant]
     Active Substance: CHOLECALCIFEROL
  4. SELENIUM [Concomitant]
     Active Substance: SELENIUM
  5. MIRENA [Suspect]
     Active Substance: LEVONORGESTREL
     Indication: MULTIPLE SCLEROSIS
     Dosage: 20 MCG/24HR, CONT
     Route: 015
  6. AUBAGIO [Concomitant]
     Active Substance: TERIFLUNOMIDE
     Dosage: UNK

REACTIONS (3)
  - Off label use [None]
  - Diarrhoea [None]
  - Alopecia [None]
